FAERS Safety Report 21877797 (Version 1)
Quarter: 2023Q1

REPORT INFORMATION
  Report Type: Spontaneous
  Country: US (occurrence: None)
  Receive Date: 20230116
  Receipt Date: 20230116
  Transmission Date: 20230417
  Serious: No
  Sender: FDA-Public Use
  Company Number: None

PATIENT
  Age: 57 Year
  Sex: Male

DRUGS (1)
  1. HUMIRA [Suspect]
     Active Substance: ADALIMUMAB
     Indication: Rheumatoid arthritis
     Dosage: OTHER FREQUENCY : EVERY 2 WEEKS;?
     Route: 058
     Dates: start: 202203

REACTIONS (7)
  - Limb operation [None]
  - Post procedural infection [None]
  - Peripheral swelling [None]
  - Musculoskeletal disorder [None]
  - Arteriovenous fistula site infection [None]
  - Product use issue [None]
  - Product dose omission in error [None]
